FAERS Safety Report 12247983 (Version 2)
Quarter: 2016Q2

REPORT INFORMATION
  Report Type: Spontaneous
  Country: US (occurrence: US)
  Receive Date: 20160408
  Receipt Date: 20160415
  Transmission Date: 20160815
  Serious: No
  Sender: FDA-Public Use
  Company Number: US-TEVA-630497USA

PATIENT
  Age: 40 Year
  Sex: Female

DRUGS (1)
  1. ZECUITY [Suspect]
     Active Substance: SUMATRIPTAN SUCCINATE
     Indication: HEADACHE
     Route: 062

REACTIONS (4)
  - Application site pruritus [Recovering/Resolving]
  - Skin exfoliation [Recovering/Resolving]
  - Drug ineffective [Unknown]
  - Application site erythema [Recovering/Resolving]

NARRATIVE: CASE EVENT DATE: 201601
